FAERS Safety Report 4422497-3 (Version None)
Quarter: 2004Q3

REPORT INFORMATION
  Report Type: 
  Country: None (occurrence: None)
  Receive Date: 20040810
  Receipt Date: 20040714
  Transmission Date: 20050211
  Serious: Yes (Hospitalization, Other)
  Sender: FDA-Public Use
  Company Number: PHBS2004JP09447

PATIENT
  Age: 68 Year
  Sex: Female
  Weight: 60 kg

DRUGS (5)
  1. TEGRETOL [Suspect]
     Indication: TRIGEMINAL NEURALGIA
     Dosage: 600 MG/DAY
     Route: 048
     Dates: start: 20030217, end: 20030601
  2. TEGRETOL [Suspect]
     Dosage: 200 MG/DAY
     Route: 048
     Dates: start: 20030601, end: 20030807
  3. EXCEGRAN [Suspect]
     Indication: TRIGEMINAL NEURALGIA
     Dosage: 150 TO 200 MG/DAY
     Route: 065
     Dates: start: 20030630, end: 20030805
  4. EXCEGRAN [Suspect]
     Dosage: 250 MG/DAY
     Dates: start: 20030806, end: 20030807
  5. MINOMYCIN [Suspect]
     Indication: PHARYNGOLARYNGEAL PAIN
     Dosage: 200 MG/DAY
     Route: 048
     Dates: start: 20030807

REACTIONS (15)
  - BLISTER [None]
  - DRUG HYPERSENSITIVITY [None]
  - EOSINOPHIL COUNT INCREASED [None]
  - ERYTHEMA MULTIFORME [None]
  - HUMAN HERPES VIRUS 6 SEROLOGY POSITIVE [None]
  - IMMUNOSUPPRESSION [None]
  - ORAL CANDIDIASIS [None]
  - PEMPHIGOID [None]
  - PHARYNGOLARYNGEAL PAIN [None]
  - PRURITUS [None]
  - PRURITUS GENERALISED [None]
  - PSYCHOTIC DISORDER [None]
  - PYREXIA [None]
  - RESPIRATORY DISORDER [None]
  - TOXIC SKIN ERUPTION [None]
